FAERS Safety Report 22056002 (Version 3)
Quarter: 2023Q2

REPORT INFORMATION
  Report Type: Spontaneous
  Country: US (occurrence: US)
  Receive Date: 20230302
  Receipt Date: 20230510
  Transmission Date: 20230721
  Serious: Yes (Other)
  Sender: FDA-Public Use
  Company Number: US-PFIZER INC-PV202300019841

PATIENT
  Age: 65 Year
  Sex: Male
  Weight: 90.1 kg

DRUGS (4)
  1. ZIRABEV [Suspect]
     Active Substance: BEVACIZUMAB-BVZR
     Indication: Astrocytoma
     Dosage: 900 MG  (Q2WEEKS)
     Route: 042
     Dates: start: 20230125
  2. ZIRABEV [Suspect]
     Active Substance: BEVACIZUMAB-BVZR
     Indication: Brain neoplasm malignant
     Dosage: 900 MG, CYCLIC (Q 14 DAYS)
     Route: 042
  3. ZIRABEV [Suspect]
     Active Substance: BEVACIZUMAB-BVZR
     Dosage: 900 MG, CYCLIC (Q 14 DAYS)
     Route: 042
  4. ZIRABEV [Suspect]
     Active Substance: BEVACIZUMAB-BVZR
     Dosage: 900 MG (Q2WEEKS)
     Route: 042
     Dates: end: 2023

REACTIONS (3)
  - Blood creatinine increased [Unknown]
  - Product preparation error [Unknown]
  - Off label use [Unknown]

NARRATIVE: CASE EVENT DATE: 20230125
